FAERS Safety Report 6603444-2 (Version None)
Quarter: 2010Q1

REPORT INFORMATION
  Report Type: 
  Country: None (occurrence: None)
  Receive Date: 20100226
  Receipt Date: 20090526
  Transmission Date: 20100710
  Serious: Yes (Other)
  Sender: FDA-Public Use
  Company Number: A0787863A

PATIENT

DRUGS (2)
  1. VALACYCLOVIR [Suspect]
  2. UNKNOWN [Concomitant]

REACTIONS (1)
  - ANAPHYLACTIC REACTION [None]
